FAERS Safety Report 4879879-5 (Version None)
Quarter: 2006Q1

REPORT INFORMATION
  Report Type: 
  Country: None (occurrence: None)
  Receive Date: 20060113
  Receipt Date: 20051005
  Transmission Date: 20060701
  Serious: Yes (Hospitalization, Other)
  Sender: FDA-Public Use
  Company Number: US-MERCK-0510USA03928

PATIENT
  Age: 68 Year
  Sex: Female
  Weight: 127 kg

DRUGS (19)
  1. PREMARIN [Concomitant]
     Indication: HYSTERECTOMY
     Route: 065
     Dates: start: 19740101
  2. BUMEX [Concomitant]
     Indication: FLUID OVERLOAD
     Route: 065
  3. BUMEX [Concomitant]
     Indication: HYPERTENSION
     Route: 065
  4. CARDIZEM [Concomitant]
     Indication: ARTERIAL OCCLUSIVE DISEASE
     Route: 065
     Dates: start: 19960706, end: 20030401
  5. ZYRTEC [Concomitant]
     Indication: HYPERSENSITIVITY
     Route: 065
  6. POTASSIUM (UNSPECIFIED) [Concomitant]
     Route: 065
  7. PRAVACHOL [Concomitant]
     Route: 065
  8. ZOLOFT [Concomitant]
     Indication: DEPRESSION
     Route: 065
     Dates: start: 20031201
  9. FUROSEMIDE [Concomitant]
     Indication: HYPERTENSION
     Route: 065
     Dates: start: 20040601
  10. FUROSEMIDE [Concomitant]
     Route: 065
     Dates: start: 20010101, end: 20040601
  11. FUROSEMIDE [Concomitant]
     Indication: FLUID OVERLOAD
     Route: 065
     Dates: start: 20040601
  12. FUROSEMIDE [Concomitant]
     Route: 065
     Dates: start: 20010101, end: 20040601
  13. NITROGLYCERIN [Concomitant]
     Route: 061
  14. METOLAZONE [Concomitant]
     Route: 065
  15. ACIPHEX [Concomitant]
     Route: 065
  16. VIOXX [Suspect]
     Indication: ARTHRITIS
     Route: 048
     Dates: start: 20010801, end: 20040101
  17. VIOXX [Suspect]
     Route: 048
     Dates: start: 20040601, end: 20040801
  18. SYNTHROID [Concomitant]
     Route: 065
  19. PREMARIN [Concomitant]
     Indication: HORMONE REPLACEMENT THERAPY
     Route: 065
     Dates: start: 19740101

REACTIONS (27)
  - ACUTE MYOCARDIAL INFARCTION [None]
  - ANGINA PECTORIS [None]
  - BACK PAIN [None]
  - BLOOD CHOLESTEROL INCREASED [None]
  - BLOOD TRIGLYCERIDES INCREASED [None]
  - CARDIAC FAILURE CONGESTIVE [None]
  - CEREBROVASCULAR ACCIDENT [None]
  - CHOLECYSTITIS INFECTIVE [None]
  - CHOLELITHIASIS [None]
  - CORONARY ARTERY DISEASE [None]
  - CORONARY ARTERY OCCLUSION [None]
  - DEPRESSION [None]
  - ELECTROCARDIOGRAM T WAVE ABNORMAL [None]
  - FISTULA [None]
  - FURUNCLE [None]
  - HAEMATOMA [None]
  - HYPERTENSION [None]
  - HYPOKALAEMIA [None]
  - NODULE ON EXTREMITY [None]
  - POSTOPERATIVE ILEUS [None]
  - RENAL FAILURE [None]
  - RESTRICTIVE PULMONARY DISEASE [None]
  - SKIN ULCER [None]
  - VASCULAR RUPTURE [None]
  - VENTRICULAR EXTRASYSTOLES [None]
  - VIRAL DIARRHOEA [None]
  - WOUND DEHISCENCE [None]
